FAERS Safety Report 8372425-3 (Version None)
Quarter: 2012Q2

REPORT INFORMATION
  Report Type: 
  Country: None (occurrence: None)
  Receive Date: 20120521
  Receipt Date: 20120514
  Transmission Date: 20120825
  Serious: Yes (Other)
  Sender: FDA-Public Use
  Company Number: IE-US-EMD SERONO, INC.-7045377

PATIENT
  Sex: Male

DRUGS (2)
  1. ANTI-DEPRESSANTS [Concomitant]
     Indication: PRODUCT USED FOR UNKNOWN INDICATION
  2. REBIF [Suspect]
     Indication: RELAPSING-REMITTING MULTIPLE SCLEROSIS
     Route: 058
     Dates: start: 20040526

REACTIONS (10)
  - VISUAL IMPAIRMENT [None]
  - EYE PAIN [None]
  - PARAESTHESIA [None]
  - DIZZINESS [None]
  - FATIGUE [None]
  - EYE DISORDER [None]
  - INJECTION SITE HAEMATOMA [None]
  - LOWER RESPIRATORY TRACT INFECTION [None]
  - LACRIMATION INCREASED [None]
  - DEPRESSED MOOD [None]
